FAERS Safety Report 8101911 (Version 14)
Quarter: 2014Q1

REPORT INFORMATION
  Report Type: Spontaneous
  Country: SE (occurrence: SE)
  Receive Date: 20110823
  Receipt Date: 20140106
  Transmission Date: 20141002
  Serious: Yes (Death, Hospitalization)
  Sender: FDA-Public Use
  Company Number: SE-SANOFI-AVENTIS-2011SA052237

PATIENT
  Age: 60 Year
  Sex: Male

DRUGS (29)
  1. ISCOVER [Suspect]
     Indication: PRODUCT USED FOR UNKNOWN INDICATION
     Route: 065
     Dates: end: 20110903
  2. SAXAGLIPTIN HYDROCHLORIDE [Suspect]
     Indication: TYPE 2 DIABETES MELLITUS
     Route: 065
     Dates: start: 20110414, end: 20110711
  3. METFORMIN [Suspect]
     Indication: TYPE 2 DIABETES MELLITUS
     Route: 065
     Dates: end: 20110711
  4. INSULATARD [Suspect]
     Indication: DIABETES MELLITUS
     Route: 065
     Dates: start: 20110718, end: 20110903
  5. NOVORAPID [Suspect]
     Indication: DIABETES MELLITUS
     Route: 065
     Dates: start: 20110711, end: 20110719
  6. TROMBYL [Suspect]
     Indication: PRODUCT USED FOR UNKNOWN INDICATION
     Route: 065
     Dates: end: 20110721
  7. TROMBYL [Suspect]
     Indication: PRODUCT USED FOR UNKNOWN INDICATION
     Dosage: LESS TAN EQUAL TO 100 MG
     Route: 065
     Dates: end: 20110721
  8. LACTULOSE [Suspect]
     Indication: PRODUCT USED FOR UNKNOWN INDICATION
     Route: 065
     Dates: start: 20110720, end: 20110725
  9. DALTEPARIN SODIUM [Suspect]
     Indication: PRODUCT USED FOR UNKNOWN INDICATION
     Dosage: DOSE:15000 UNIT(S)
     Route: 065
     Dates: start: 20110711, end: 20110903
  10. SODIUM PICOSULFATE [Suspect]
     Indication: PRODUCT USED FOR UNKNOWN INDICATION
     Route: 065
     Dates: start: 20110712, end: 20110725
  11. OMEPRAZOLE [Concomitant]
     Dates: start: 20110716, end: 20110903
  12. FUROSEMID [Concomitant]
     Dates: start: 20110711
  13. FUROSEMID [Concomitant]
     Dates: start: 20110822, end: 20110903
  14. SPIRONOLACTONE [Concomitant]
     Dates: start: 20110713, end: 20110903
  15. OXYCONTIN [Concomitant]
     Dates: start: 20110711, end: 20110903
  16. IMPORTAL [Concomitant]
     Dates: start: 20110726, end: 20110903
  17. ANGIOTENSIN II ANTAGONISTS [Concomitant]
  18. HMG COA REDUCTASE INHIBITORS [Concomitant]
  19. BETA BLOCKING AGENTS [Concomitant]
  20. PLATELET AGGREGATION INHIBITORS [Concomitant]
  21. PRIMPERAN [Concomitant]
     Dates: start: 20110812, end: 20110818
  22. PRIMPERAN [Concomitant]
     Dates: start: 20110823, end: 20110903
  23. HEPARIN [Concomitant]
     Dates: start: 20110824, end: 20110826
  24. FRAGMIN [Concomitant]
     Dates: start: 20110826, end: 20110903
  25. MORFIN [Concomitant]
     Dates: start: 20110830, end: 20110903
  26. ETHYLMORPHINE [Concomitant]
     Dates: start: 20110811, end: 20110817
  27. PROPRANOLOL [Concomitant]
     Dates: start: 20110811, end: 20110827
  28. NOSKAPIN [Concomitant]
     Dates: start: 20110813, end: 20110818
  29. ASPIRIN [Concomitant]
     Dosage: LESS THAN EQUAL TO 100 MG

REACTIONS (15)
  - Pulmonary embolism [Fatal]
  - Chest pain [Fatal]
  - Dyspnoea [Fatal]
  - Inguinal hernia [Recovered/Resolved]
  - Portal vein thrombosis [Not Recovered/Not Resolved]
  - Liver disorder [Not Recovered/Not Resolved]
  - Ascites [Not Recovered/Not Resolved]
  - Constipation [Not Recovered/Not Resolved]
  - Abdominal pain [Recovered/Resolved]
  - Gastrointestinal disorder [Not Recovered/Not Resolved]
  - Dysphagia [Not Recovered/Not Resolved]
  - Haematuria [Recovered/Resolved]
  - Blood urine present [Recovered/Resolved]
  - Nausea [Not Recovered/Not Resolved]
  - Cough [Unknown]
